FAERS Safety Report 4783736-2 (Version None)
Quarter: 2005Q3

REPORT INFORMATION
  Report Type: 
  Country: None (occurrence: None)
  Receive Date: 20050927
  Receipt Date: 20050525
  Transmission Date: 20060218
  Serious: No
  Sender: FDA-Public Use
  Company Number: USA050599159

PATIENT
  Age: 12 Year
  Sex: Female

DRUGS (2)
  1. STRATTERA [Suspect]
     Dosage: 80 MG
  2. RITALIN LA [Concomitant]

REACTIONS (2)
  - EDUCATIONAL PROBLEM [None]
  - TRICHOTILLOMANIA [None]
